FAERS Safety Report 15516271 (Version 2)
Quarter: 2021Q3

REPORT INFORMATION
  Report Type: Spontaneous
  Country: SI (occurrence: SI)
  Receive Date: 20181017
  Receipt Date: 20210827
  Transmission Date: 20211014
  Serious: No
  Sender: FDA-Public Use
  Company Number: SI-TEVA-2018-SI-957841

PATIENT
  Age: 52 Year
  Sex: Female

DRUGS (5)
  1. AMLESSA [Concomitant]
     Active Substance: AMLODIPINE BESYLATE\PERINDOPRIL ERBUMINE
     Indication: HYPERTENSION
     Dosage: PERINDOPRIL 4 MG  AND AMLODIPINE 10 MG
     Route: 065
  2. LEVEMIR [Concomitant]
     Active Substance: INSULIN DETEMIR
     Indication: DIABETES MELLITUS
     Route: 065
  3. CORYOL 25 MG [Concomitant]
     Indication: HYPERTENSION
     Route: 065
  4. TONOCARDIN [Suspect]
     Active Substance: DOXAZOSIN MESYLATE
     Indication: HYPERTENSION
     Dosage: 2 MILLIGRAM DAILY;
     Route: 048
     Dates: start: 20180828, end: 20180829
  5. PRENEWEL [Concomitant]
     Active Substance: INDAPAMIDE\PERINDOPRIL ERBUMINE
     Indication: HYPERTENSION
     Dosage: PERINDOPRIL 8 MG AND  INDAPAMIDE 2.5 MG
     Route: 065

REACTIONS (3)
  - Hypersensitivity [Recovered/Resolved with Sequelae]
  - Skin ulcer [Recovered/Resolved with Sequelae]
  - Subcutaneous abscess [Recovered/Resolved with Sequelae]

NARRATIVE: CASE EVENT DATE: 20180828
